FAERS Safety Report 13652642 (Version 1)
Quarter: 2017Q2

REPORT INFORMATION
  Report Type: Spontaneous
  Country: US (occurrence: US)
  Receive Date: 20170614
  Receipt Date: 20170614
  Transmission Date: 20170830
  Serious: No
  Sender: FDA-Public Use
  Company Number: US-ROCHE-1378599

PATIENT
  Sex: Female

DRUGS (1)
  1. XELODA [Suspect]
     Active Substance: CAPECITABINE
     Indication: NEOPLASM MALIGNANT
     Dosage: FOR 14 DAYS
     Route: 048
     Dates: start: 20130930

REACTIONS (5)
  - Memory impairment [Unknown]
  - Fatigue [Unknown]
  - Drug dose omission [Unknown]
  - Tremor [Unknown]
  - Fungal infection [Not Recovered/Not Resolved]
